FAERS Safety Report 4875372-4 (Version None)
Quarter: 2006Q1

REPORT INFORMATION
  Report Type: 
  Country: None (occurrence: None)
  Receive Date: 20060109
  Receipt Date: 20051229
  Transmission Date: 20060701
  Serious: Yes (Hospitalization)
  Sender: FDA-Public Use
  Company Number: US-MERCK-0601USA00035

PATIENT
  Age: 74 Year
  Sex: Female
  Weight: 57 kg

DRUGS (17)
  1. VIOXX [Suspect]
     Indication: ARTHRITIS
     Route: 048
     Dates: start: 20000101, end: 20040101
  2. PACERONE [Concomitant]
     Route: 048
  3. K-DUR 10 [Concomitant]
     Route: 048
  4. ASPIRIN [Concomitant]
     Route: 048
  5. OS-CAL [Concomitant]
     Route: 048
  6. AVAPRO [Concomitant]
     Route: 048
  7. PLAVIX [Concomitant]
     Route: 048
  8. NORVASC [Concomitant]
     Route: 048
  9. LIPITOR [Concomitant]
     Route: 048
  10. MECLIZINE [Concomitant]
     Route: 048
  11. ZANTAC [Concomitant]
     Route: 048
  12. [THERAPY UNSPECIFIED] [Concomitant]
     Route: 048
  13. PRILOSEC [Concomitant]
     Route: 048
  14. ACCOLATE [Concomitant]
     Route: 048
  15. AMBIEN [Concomitant]
     Route: 048
  16. VITAMINS (UNSPECIFIED) [Concomitant]
     Route: 048
  17. LANOXIN [Concomitant]
     Route: 048

REACTIONS (14)
  - ANXIETY [None]
  - CHEST PAIN [None]
  - COLONIC POLYP [None]
  - CORONARY ARTERY DISEASE [None]
  - GASTROENTERITIS [None]
  - GASTROINTESTINAL HAEMORRHAGE [None]
  - GASTROOESOPHAGEAL REFLUX DISEASE [None]
  - LIVER DISORDER [None]
  - MYOCARDIAL INFARCTION [None]
  - PROTEUS INFECTION [None]
  - REFRACTORY ANAEMIA [None]
  - ROTATOR CUFF SYNDROME [None]
  - TRANSIENT ISCHAEMIC ATTACK [None]
  - VERTIGO [None]
